FAERS Safety Report 25405467 (Version 1)
Quarter: 2025Q2

REPORT INFORMATION
  Report Type: Spontaneous
  Country: RO (occurrence: RO)
  Receive Date: 20250606
  Receipt Date: 20250606
  Transmission Date: 20250716
  Serious: Yes (Hospitalization)
  Sender: BOEHRINGER INGELHEIM
  Company Number: RO-BoehringerIngelheim-2025-BI-074041

PATIENT
  Age: 49 Year
  Sex: Female

DRUGS (3)
  1. OFEV [Suspect]
     Active Substance: NINTEDANIB
     Indication: Hypersensitivity pneumonitis
     Dates: start: 202407
  2. OFEV [Suspect]
     Active Substance: NINTEDANIB
     Dates: start: 202410
  3. OFEV [Suspect]
     Active Substance: NINTEDANIB

REACTIONS (2)
  - Hiatus hernia [Recovered/Resolved]
  - Gastrointestinal disorder [Recovered/Resolved]
